FAERS Safety Report 13753824 (Version 5)
Quarter: 2018Q3

REPORT INFORMATION
  Report Type: Report from Study
  Country: US (occurrence: US)
  Receive Date: 20170713
  Receipt Date: 20180711
  Transmission Date: 20181010
  Serious: No
  Sender: FDA-Public Use
  Company Number: GXBR2017US001989

PATIENT
  Age: 48 Year
  Sex: Female
  Weight: 68.27 kg

DRUGS (1)
  1. GLATOPA [Suspect]
     Active Substance: GLATIRAMER ACETATE
     Indication: MULTIPLE SCLEROSIS
     Dosage: 20 MG, QD
     Route: 058
     Dates: start: 2015

REACTIONS (3)
  - Incorrect dose administered by device [Unknown]
  - Tremor [Not Recovered/Not Resolved]
  - Syringe issue [Unknown]

NARRATIVE: CASE EVENT DATE: 20180428
